FAERS Safety Report 5755553-8 (Version None)
Quarter: 2008Q2

REPORT INFORMATION
  Report Type: 
  Country: None (occurrence: None)
  Receive Date: 20080602
  Receipt Date: 20080529
  Transmission Date: 20081010
  Serious: Yes (Other)
  Sender: FDA-Public Use
  Company Number: US-BRISTOL-MYERS SQUIBB COMPANY-14209407

PATIENT
  Age: 36 Year
  Sex: Female
  Weight: 60 kg

DRUGS (8)
  1. ESTRACE [Suspect]
     Route: 048
     Dates: start: 20070101, end: 20070701
  2. GONAL-F [Suspect]
     Indication: ASSISTED FERTILISATION
     Dosage: ALSO GIVEN-150IU, DOSE BY INJECTION.
     Dates: start: 20070401, end: 20070501
  3. LUPRON [Suspect]
     Indication: IN VITRO FERTILISATION
     Dates: start: 20070401, end: 20070501
  4. MENOPUR [Suspect]
     Indication: IN VITRO FERTILISATION
     Dates: start: 20070401, end: 20070501
  5. HUMAN CHORIONIC GONADOTROPHIN [Suspect]
     Indication: INFERTILITY
     Route: 030
     Dates: start: 20070501
  6. PROGESTERONE [Suspect]
     Dates: start: 20070101, end: 20070701
  7. ASPIRIN [Concomitant]
     Indication: COAGULOPATHY
  8. LOVENOX [Concomitant]
     Indication: COAGULOPATHY

REACTIONS (3)
  - ABORTION SPONTANEOUS [None]
  - OVARIAN CYST [None]
  - PREGNANCY [None]
